FAERS Safety Report 4325327-3 (Version None)
Quarter: 2004Q1

REPORT INFORMATION
  Report Type: 
  Country: None (occurrence: None)
  Receive Date: 20040326
  Receipt Date: 20040326
  Transmission Date: 20041129
  Serious: No
  Sender: FDA-Public Use
  Company Number: None

PATIENT
  Age: 2 Day
  Sex: Female
  Weight: 3.1752 kg

DRUGS (2)
  1. ZANTAC [Suspect]
     Indication: GASTROOESOPHAGEAL REFLUX DISEASE
     Dosage: 2.48 3/DAY ORAL
     Route: 048
     Dates: start: 20040209, end: 20040324
  2. REGLAN [Suspect]
     Indication: GASTROOESOPHAGEAL REFLUX DISEASE
     Dosage: 1.5 3/DAY ORAL
     Route: 048
     Dates: start: 20040209, end: 20040324

REACTIONS (1)
  - MEDICATION ERROR [None]
